FAERS Safety Report 4385100-7 (Version None)
Quarter: 2004Q2

REPORT INFORMATION
  Report Type: 
  Country: None (occurrence: None)
  Receive Date: 20040621
  Receipt Date: 20040621
  Transmission Date: 20050107
  Serious: Yes (Other)
  Sender: FDA-Public Use
  Company Number: None

PATIENT
  Age: 72 Year
  Sex: Male
  Weight: 88.2 kg

DRUGS (6)
  1. EZETIMIBE 10 MG MERCK/SCHERING PLOUGH [Suspect]
     Indication: HYPERLIPIDAEMIA
     Dosage: 10 DAILY ORAL
     Route: 048
     Dates: start: 20040520, end: 20040528
  2. ATORVASTATIN CALCIUM [Concomitant]
  3. LORAZEPAM [Concomitant]
  4. MESALAMINE [Concomitant]
  5. METOPROLOL TARTRATE [Concomitant]
  6. TRIAMTERENE [Concomitant]

REACTIONS (2)
  - DIARRHOEA [None]
  - FLATULENCE [None]
